FAERS Safety Report 24970959 (Version 1)
Quarter: 2025Q1

REPORT INFORMATION
  Report Type: Spontaneous
  Country: US (occurrence: US)
  Receive Date: 20250214
  Receipt Date: 20250214
  Transmission Date: 20250409
  Serious: Yes (Death, Hospitalization, Other)
  Sender: UCB
  Company Number: US-UCBSA-2025008556

PATIENT
  Sex: Female

DRUGS (5)
  1. VIMPAT [Suspect]
     Active Substance: LACOSAMIDE
     Indication: Status epilepticus
     Route: 048
  2. VIMPAT [Suspect]
     Active Substance: LACOSAMIDE
     Route: 048
  3. VIMPAT [Suspect]
     Active Substance: LACOSAMIDE
     Route: 048
  4. VIMPAT [Suspect]
     Active Substance: LACOSAMIDE
     Indication: Status epilepticus
     Route: 042
     Dates: start: 20220422
  5. ATIVAN [Concomitant]
     Active Substance: LORAZEPAM
     Indication: Product used for unknown indication

REACTIONS (19)
  - Death [Fatal]
  - Fall [Unknown]
  - Skin laceration [Unknown]
  - Ventricular tachycardia [Unknown]
  - Cardiac arrest [Unknown]
  - Brain injury [Unknown]
  - Critical illness [Unknown]
  - Staphylococcal bacteraemia [Unknown]
  - Septic shock [Unknown]
  - Pneumonia [Unknown]
  - Agitation [Unknown]
  - Balance disorder [Unknown]
  - Behaviour disorder [Unknown]
  - Rib fracture [Unknown]
  - Traumatic lung injury [Unknown]
  - Emotional distress [Unknown]
  - Pain [Unknown]
  - Endotracheal intubation [Unknown]
  - Wrong technique in product usage process [Unknown]

NARRATIVE: CASE EVENT DATE: 20220101
